FAERS Safety Report 14918373 (Version 1)
Quarter: 2018Q2

REPORT INFORMATION
  Report Type: Report from Study
  Country: IN (occurrence: IN)
  Receive Date: 20180521
  Receipt Date: 20180521
  Transmission Date: 20180711
  Serious: Yes (Death)
  Sender: FDA-Public Use
  Company Number: PHHY2018IN004130

PATIENT
  Age: 72 Year
  Sex: Male

DRUGS (1)
  1. SPEXIB [Suspect]
     Active Substance: CERITINIB
     Indication: NON-SMALL CELL LUNG CANCER
     Dosage: 450 MG, TID
     Route: 048
     Dates: start: 20180415, end: 20180509

REACTIONS (1)
  - Death [Fatal]

NARRATIVE: CASE EVENT DATE: 20180510
